FAERS Safety Report 17491227 (Version 4)
Quarter: 2020Q3

REPORT INFORMATION
  Report Type: Spontaneous
  Country: US (occurrence: US)
  Receive Date: 20200303
  Receipt Date: 20200807
  Transmission Date: 20201102
  Serious: No
  Sender: FDA-Public Use
  Company Number: US-SA-2020SA049068

PATIENT

DRUGS (1)
  1. DUPIXENT [Suspect]
     Active Substance: DUPILUMAB
     Indication: DERMATITIS ATOPIC
     Dosage: 300 MG, QOW
     Route: 058
     Dates: start: 20200211

REACTIONS (8)
  - Headache [Recovered/Resolved]
  - Therapeutic response decreased [Unknown]
  - Nausea [Unknown]
  - Alopecia [Unknown]
  - Exposure during pregnancy [Unknown]
  - Malaise [Recovered/Resolved]
  - Eczema [Unknown]
  - Pruritus [Unknown]

NARRATIVE: CASE EVENT DATE: 2020
